FAERS Safety Report 4330451-5 (Version None)
Quarter: 2004Q1

REPORT INFORMATION
  Report Type: 
  Country: None (occurrence: None)
  Receive Date: 20040329
  Receipt Date: 20040318
  Transmission Date: 20041129
  Serious: Yes (Hospitalization)
  Sender: FDA-Public Use
  Company Number: 203459

PATIENT
  Age: 52 Year
  Sex: Female

DRUGS (9)
  1. HERCEPTIN (TRATUZUMAB) PWDR + SOLVENT, INFUSION SOLU, 440 MG [Suspect]
     Indication: BREAST CANCER
     Dosage: SEE IMAGE
     Route: 042
     Dates: start: 20031021, end: 20031021
  2. DOCETAXEL (DOCETAXEL) [Suspect]
     Indication: BREAST CANCER
     Dosage: 135 MG, Q3W, INTRAVENOUS
     Route: 042
     Dates: start: 20031022
  3. CARBOPLATIN [Suspect]
     Indication: BREAST CANCER
     Dosage: 609.18 MG, Q3W, INTRAVENOUS
     Route: 042
     Dates: start: 20031022
  4. ORBENIN (CLOXACILLIN SODIUM) [Concomitant]
  5. VARIDASA (STREPTODORNASE, STREPTOKINASE) [Concomitant]
  6. RANITIDINA (RANITIDINE) [Concomitant]
  7. ZOFRAN [Concomitant]
  8. DECADRAN (DEXAMETHASONE) [Concomitant]
  9. PREDNISOLONE [Concomitant]

REACTIONS (3)
  - GASTRITIS EROSIVE [None]
  - HAEMOGLOBIN DECREASED [None]
  - WHITE BLOOD CELL COUNT INCREASED [None]
